FAERS Safety Report 25654170 (Version 1)
Quarter: 2025Q3

REPORT INFORMATION
  Report Type: Spontaneous
  Country: US (occurrence: US)
  Receive Date: 20250807
  Receipt Date: 20250807
  Transmission Date: 20251020
  Serious: No
  Sender: ITALFARMACO SPA
  Company Number: US-ITALFARMACO SPA-2182039

PATIENT
  Age: 82 Year
  Sex: Female
  Weight: 48.526 kg

DRUGS (19)
  1. TIGLUTIK [Suspect]
     Active Substance: RILUZOLE
     Indication: Amyotrophic lateral sclerosis
     Dates: start: 20241117
  2. PROAIR HFA [Concomitant]
     Active Substance: ALBUTEROL SULFATE
  3. MINERALS\VITAMINS [Concomitant]
     Active Substance: MINERALS\VITAMINS
  4. TYLENOL [Concomitant]
     Active Substance: ACETAMINOPHEN
  5. PERFOROMIST [Concomitant]
     Active Substance: FORMOTEROL FUMARATE DIHYDRATE
  6. YUPELRI [Concomitant]
     Active Substance: REVEFENACIN
  7. EFFEXOR [Concomitant]
     Active Substance: VENLAFAXINE HYDROCHLORIDE
  8. VALTREX [Concomitant]
     Active Substance: VALACYCLOVIR HYDROCHLORIDE
  9. RADICAVA [Concomitant]
     Active Substance: EDARAVONE
  10. PREDNISONE [Concomitant]
     Active Substance: PREDNISONE
  11. MELATONIN [Concomitant]
     Active Substance: MELATONIN
  12. ROBINUL [Concomitant]
     Active Substance: GLYCOPYRROLATE
  13. PEPCID [Concomitant]
     Active Substance: FAMOTIDINE
  14. MICROZIDE [Concomitant]
     Active Substance: HYDROCHLOROTHIAZIDE
  15. CARDIZEM [Concomitant]
     Active Substance: DILTIAZEM HYDROCHLORIDE
  16. MYCELEX [Concomitant]
     Active Substance: CLOTRIMAZOLE
  17. PULMICORT TURBUHALER [Concomitant]
     Active Substance: BUDESONIDE
  18. LIPITOR [Concomitant]
     Active Substance: ATORVASTATIN CALCIUM
  19. ASPIRIN [Concomitant]
     Active Substance: ASPIRIN

REACTIONS (2)
  - Retching [Not Recovered/Not Resolved]
  - Vomiting [Recovered/Resolved]

NARRATIVE: CASE EVENT DATE: 20241117
